FAERS Safety Report 5090404-9 (Version None)
Quarter: 2006Q3

REPORT INFORMATION
  Report Type: 
  Country: None (occurrence: None)
  Receive Date: 20060828
  Receipt Date: 20060516
  Transmission Date: 20061208
  Serious: Yes (Hospitalization)
  Sender: FDA-Public Use
  Company Number: FR-BRISTOL-MYERS SQUIBB COMPANY-13378716

PATIENT
  Age: 76 Year
  Sex: Male

DRUGS (6)
  1. COUMADIN [Suspect]
     Route: 048
  2. SEROPRAM [Interacting]
     Route: 048
     Dates: start: 20060130
  3. ORBENIN CAP [Concomitant]
  4. GENTAMICIN [Concomitant]
     Indication: LUNG DISORDER
  5. DIAMICRON [Concomitant]
     Indication: DIABETES MELLITUS NON-INSULIN-DEPENDENT
  6. INTERFERON [Concomitant]
     Indication: HEPATIC CIRRHOSIS

REACTIONS (8)
  - ACCIDENTAL OVERDOSE [None]
  - DEPRESSION [None]
  - DRUG INTERACTION [None]
  - HEPATIC FAILURE [None]
  - INTERNATIONAL NORMALISED RATIO INCREASED [None]
  - LUNG DISORDER [None]
  - SEPTIC SHOCK [None]
  - SUICIDE ATTEMPT [None]
